FAERS Safety Report 19053819 (Version 2)
Quarter: 2021Q3

REPORT INFORMATION
  Report Type: Report from Study
  Country: DE (occurrence: DE)
  Receive Date: 20210325
  Receipt Date: 20210730
  Transmission Date: 20211014
  Serious: Yes (Hospitalization, Other)
  Sender: FDA-Public Use
  Company Number: DE-AMGEN-DEUNI2021044546

PATIENT
  Sex: Female

DRUGS (26)
  1. ERENUMAB [Suspect]
     Active Substance: ERENUMAB
     Dosage: 140 MILLIGRAM
     Route: 065
     Dates: start: 20191108, end: 20191108
  2. ERENUMAB [Suspect]
     Active Substance: ERENUMAB
     Dosage: 140 MILLIGRAM
     Route: 065
     Dates: start: 20200319, end: 20200319
  3. ERENUMAB [Suspect]
     Active Substance: ERENUMAB
     Dosage: 140 MILLIGRAM
     Route: 065
     Dates: start: 20210516
  4. ERENUMAB [Suspect]
     Active Substance: ERENUMAB
     Dosage: 140 MILLIGRAM
     Route: 065
     Dates: start: 20201110, end: 20201110
  5. NOVAMINSULFON [Concomitant]
     Active Substance: METAMIZOLE
     Indication: NECK PAIN
     Dosage: UNK UNK, PRN (1 GTT)
     Route: 048
     Dates: start: 20191108
  6. ERENUMAB [Suspect]
     Active Substance: ERENUMAB
     Dosage: 140 MILLIGRAM
     Route: 065
     Dates: start: 20200915, end: 20200915
  7. ERENUMAB [Suspect]
     Active Substance: ERENUMAB
     Indication: MIGRAINE
     Dosage: 140 UNK
     Route: 058
     Dates: start: 20190507
  8. ERENUMAB [Suspect]
     Active Substance: ERENUMAB
     Dosage: 140 MILLIGRAM
     Route: 065
     Dates: start: 20190709, end: 20190709
  9. ERENUMAB [Suspect]
     Active Substance: ERENUMAB
     Dosage: 140 MILLIGRAM
     Route: 065
     Dates: start: 20200216, end: 20200216
  10. ERENUMAB [Suspect]
     Active Substance: ERENUMAB
     Dosage: 140 MILLIGRAM
     Route: 065
     Dates: start: 20200514, end: 20200514
  11. ERENUMAB [Suspect]
     Active Substance: ERENUMAB
     Dosage: 140 MILLIGRAM
     Route: 065
     Dates: start: 20200616, end: 20200616
  12. ERENUMAB [Suspect]
     Active Substance: ERENUMAB
     Dosage: 140 MILLIGRAM
     Route: 065
     Dates: start: 20200714, end: 20200714
  13. ERENUMAB [Suspect]
     Active Substance: ERENUMAB
     Dosage: 140 MILLIGRAM
     Route: 065
     Dates: start: 20200416, end: 20200416
  14. ERENUMAB [Suspect]
     Active Substance: ERENUMAB
     Dosage: 140 MILLIGRAM
     Route: 065
     Dates: start: 20210114, end: 20210114
  15. ERENUMAB [Suspect]
     Active Substance: ERENUMAB
     Dosage: 140 MILLIGRAM
     Route: 065
     Dates: start: 20210318, end: 20210318
  16. METOPROLOL. [Concomitant]
     Active Substance: METOPROLOL
     Indication: HYPERTENSION
     Dosage: 47.5 MG, QD
     Route: 048
     Dates: start: 20200618
  17. ERENUMAB [Suspect]
     Active Substance: ERENUMAB
     Dosage: 140 MILLIGRAM
     Route: 065
     Dates: start: 20191216, end: 20191216
  18. ERENUMAB [Suspect]
     Active Substance: ERENUMAB
     Dosage: 140 MILLIGRAM
     Route: 065
     Dates: start: 20200101, end: 20200101
  19. ERENUMAB [Suspect]
     Active Substance: ERENUMAB
     Dosage: 140 MILLIGRAM
     Route: 065
     Dates: start: 20201013, end: 20201013
  20. ERENUMAB [Suspect]
     Active Substance: ERENUMAB
     Dosage: 140 MILLIGRAM
     Route: 065
     Dates: start: 20201210, end: 20201210
  21. ERENUMAB [Suspect]
     Active Substance: ERENUMAB
     Dosage: 70 MILLIGRAM
     Route: 065
     Dates: start: 20190820, end: 20190820
  22. ERENUMAB [Suspect]
     Active Substance: ERENUMAB
     Dosage: 140 MILLIGRAM
     Route: 065
     Dates: start: 20190917, end: 20190917
  23. ERENUMAB [Suspect]
     Active Substance: ERENUMAB
     Dosage: 140 MILLIGRAM
     Route: 065
     Dates: start: 20191014, end: 20191014
  24. ERENUMAB [Suspect]
     Active Substance: ERENUMAB
     Dosage: 140 MILLIGRAM
     Route: 065
     Dates: start: 20200813, end: 20200813
  25. ERENUMAB [Suspect]
     Active Substance: ERENUMAB
     Dosage: 140 MILLIGRAM
     Route: 065
     Dates: start: 20210217, end: 20210217
  26. ERENUMAB [Suspect]
     Active Substance: ERENUMAB
     Dosage: 140 MILLIGRAM
     Route: 065
     Dates: start: 20210415, end: 20210415

REACTIONS (4)
  - Goitre [Unknown]
  - Deep vein thrombosis [Unknown]
  - Pulmonary embolism [Recovered/Resolved]
  - Coagulopathy [Unknown]

NARRATIVE: CASE EVENT DATE: 20210115
